FAERS Safety Report 11686953 (Version 1)
Quarter: 2015Q4

REPORT INFORMATION
  Report Type: Spontaneous
  Country: ZA (occurrence: ZA)
  Receive Date: 20151030
  Receipt Date: 20151030
  Transmission Date: 20160304
  Serious: Yes (Hospitalization, Other)
  Sender: FDA-Public Use
  Company Number: ZA-ACTAVIS-2015-23329

PATIENT
  Age: 39 Year
  Sex: Male

DRUGS (2)
  1. CIPROFLOXACIN HYDROCHLORIDE (UNKNOWN) [Suspect]
     Active Substance: CIPROFLOXACIN HYDROCHLORIDE
     Indication: DYSURIA
     Dosage: UNK
     Route: 065
     Dates: start: 201502
  2. CEFIXIME (UNKNOWN) [Suspect]
     Active Substance: CEFIXIME
     Indication: PRODUCT USED FOR UNKNOWN INDICATION
     Dosage: UNK
     Route: 065
     Dates: start: 2008

REACTIONS (2)
  - Kounis syndrome [Recovered/Resolved]
  - Drug hypersensitivity [Recovered/Resolved]
